FAERS Safety Report 5586158-X (Version None)
Quarter: 2008Q1

REPORT INFORMATION
  Report Type: 
  Country: None (occurrence: None)
  Receive Date: 20080104
  Receipt Date: 20071227
  Transmission Date: 20080703
  Serious: Yes (Hospitalization, Other)
  Sender: FDA-Public Use
  Company Number: 08H-167-0313636-00

PATIENT
  Age: 75 Year
  Sex: Female

DRUGS (2)
  1. DOBUTAMINE IN DEXTROSE 5% [Suspect]
     Indication: STRESS ECHOCARDIOGRAM
     Dosage: 10 - 30 MCG/KG/MIN,
  2. ATROPINE [Concomitant]

REACTIONS (2)
  - NO THERAPEUTIC RESPONSE [None]
  - STRESS CARDIOMYOPATHY [None]
